FAERS Safety Report 10230553 (Version 1)
Quarter: 2014Q2

REPORT INFORMATION
  Report Type: Spontaneous
  Country: AU (occurrence: AU)
  Receive Date: 20140611
  Receipt Date: 20140611
  Transmission Date: 20141212
  Serious: Yes (Other)
  Sender: FDA-Public Use
  Company Number: PHHY2014AU069594

PATIENT
  Age: 54 Year
  Sex: Male

DRUGS (7)
  1. METHOTREXATE [Suspect]
     Indication: CENTRAL NERVOUS SYSTEM LYMPHOMA
     Dosage: 3 G/M2 (TOTAL DOSE 5.6G PER CYCLE)
     Route: 042
  2. CHLOROPHYLLIN COPPER COMPLEX [Interacting]
     Dosage: 5 DRP DAILY
  3. VALACICLOVIR [Concomitant]
     Dosage: 1 G, BID
     Route: 048
  4. LEVETIRACETAM [Concomitant]
     Dosage: 500 MG, BID
     Route: 048
  5. TESTOSTERONE [Concomitant]
     Route: 061
  6. SODIUM BICARBONATE [Concomitant]
  7. CALCIUM FOLINATE [Concomitant]

REACTIONS (4)
  - Drug clearance decreased [Recovered/Resolved]
  - Creatinine renal clearance decreased [Recovered/Resolved]
  - Drug interaction [Unknown]
  - Toxicity to various agents [None]
